FAERS Safety Report 9704450 (Version 1)
Quarter: 2013Q4

REPORT INFORMATION
  Report Type: Spontaneous
  Country: US (occurrence: US)
  Receive Date: 20131122
  Receipt Date: 20131122
  Transmission Date: 20140711
  Serious: Yes (Other)
  Sender: FDA-Public Use
  Company Number: PHHY2013US131785

PATIENT
  Age: 52 Year
  Sex: Female

DRUGS (10)
  1. CHLORTALIDONE [Suspect]
     Indication: HYPERTENSION
     Dosage: 25 MG, UNK
  2. CHLORTALIDONE [Suspect]
     Dosage: 15 MG, DAILY
  3. OLMESARTAN [Suspect]
     Indication: HYPERTENSION
     Dosage: 40 MG, UNK
  4. NIFEDIPINE [Suspect]
     Indication: HYPERTENSION
     Dosage: 60 MG, DAILY
  5. BISOPROLOL [Suspect]
     Indication: HYPERTENSION
     Dosage: 15 MG, UNK
  6. BISOPROLOL [Suspect]
     Dosage: 10 MG, DAILY
  7. EPLERENONE [Suspect]
     Indication: HYPERTENSION
     Dosage: 50 MG, QD
  8. EPLERENONE [Suspect]
     Dosage: 25 MG, DAILY
  9. CLONIDINE [Suspect]
     Indication: HYPERTENSION
     Dosage: 0.15 MG, TID
  10. CLONIDINE [Suspect]
     Dosage: 0.225 MG, DAILY

REACTIONS (7)
  - Left ventricular hypertrophy [None]
  - Organ failure [Unknown]
  - Blood pressure increased [Recovered/Resolved]
  - Glomerular filtration rate decreased [Unknown]
  - Heart rate decreased [Recovered/Resolved]
  - Dizziness [Recovered/Resolved]
  - Drug ineffective [Unknown]
